FAERS Safety Report 25475087 (Version 1)
Quarter: 2025Q2

REPORT INFORMATION
  Report Type: Report from Study
  Country: US (occurrence: US)
  Receive Date: 20250624
  Receipt Date: 20250624
  Transmission Date: 20250716
  Serious: Yes (Hospitalization, Other)
  Sender: SANDOZ
  Company Number: US-002147023-NVSC2025US089005

PATIENT
  Age: 65 Year
  Sex: Male
  Weight: 64.5 kg

DRUGS (10)
  1. APIXABAN [Suspect]
     Active Substance: APIXABAN
     Indication: Product used for unknown indication
     Route: 065
  2. FLUOROURACIL [Suspect]
     Active Substance: FLUOROURACIL
     Indication: Ductal adenocarcinoma of pancreas
     Route: 042
     Dates: start: 20250527, end: 20250529
  3. HEPARIN [Suspect]
     Active Substance: HEPARIN SODIUM
     Indication: Product used for unknown indication
     Route: 065
     Dates: start: 20250530
  4. HEPARIN [Suspect]
     Active Substance: HEPARIN SODIUM
     Route: 065
     Dates: start: 20250530
  5. IRINOTECAN [Suspect]
     Active Substance: IRINOTECAN
     Indication: Ductal adenocarcinoma of pancreas
     Route: 042
     Dates: start: 20250527, end: 20250527
  6. LEUCOVORIN [Suspect]
     Active Substance: LEUCOVORIN\LEUCOVORIN CALCIUM
     Indication: Ductal adenocarcinoma of pancreas
     Route: 042
     Dates: start: 20250527, end: 20250527
  7. OXALIPLATIN [Suspect]
     Active Substance: OXALIPLATIN
     Indication: Ductal adenocarcinoma of pancreas
     Route: 042
     Dates: start: 20250527, end: 20250527
  8. ATORVASTATIN [Concomitant]
     Active Substance: ATORVASTATIN
     Indication: Hyperlipidaemia
     Route: 048
     Dates: start: 2005
  9. MAGNESIUM [Concomitant]
     Active Substance: MAGNESIUM
     Indication: Supplementation therapy
     Route: 048
     Dates: start: 202502
  10. RAMIPRIL [Concomitant]
     Active Substance: RAMIPRIL
     Indication: Hypertension
     Route: 048
     Dates: start: 2005

REACTIONS (6)
  - Cardiomyopathy [Recovering/Resolving]
  - Chest pain [Unknown]
  - Hypotension [Recovered/Resolved]
  - Gastrointestinal haemorrhage [Recovered/Resolved]
  - Atrial fibrillation [Recovered/Resolved]
  - Acute kidney injury [Recovered/Resolved]

NARRATIVE: CASE EVENT DATE: 20250530
